FAERS Safety Report 10612119 (Version 2)
Quarter: 2014Q4

REPORT INFORMATION
  Report Type: Report from Study
  Country: US (occurrence: US)
  Receive Date: 20141127
  Receipt Date: 20141127
  Transmission Date: 20150529
  Serious: Yes (Death, Life-Threatening, Hospitalization)
  Sender: FDA-Public Use
  Company Number: US-009507513-1410USA007764

PATIENT
  Age: 50 Year
  Sex: Female
  Weight: 69.9 kg

DRUGS (3)
  1. IDARUBICIN [Suspect]
     Active Substance: IDARUBICIN
     Indication: ACUTE MYELOID LEUKAEMIA
     Dosage: 12 MG/M2/DAY, OVER 15 MINUTES, ON DAYS 4-6, INDUCTION AND RE-INDUCTION (CYCLE=28 DAYS), CYCLE 1
     Route: 042
     Dates: start: 20140914, end: 20140916
  2. VORINOSTAT [Suspect]
     Active Substance: VORINOSTAT
     Indication: ACUTE MYELOID LEUKAEMIA
     Dosage: 500 MG, TID, ON DAYS 1-3, INDUCTION AND RE-INDUCTION (CYCLE=28 DAYS), CYCLE 1
     Route: 048
     Dates: start: 20140911, end: 20140914
  3. CYTARABINE. [Suspect]
     Active Substance: CYTARABINE
     Indication: ACUTE MYELOID LEUKAEMIA
     Dosage: 1500 MG/M2/DAY, CONTINOUS, ON DAYS 4-7,INDUCTION AND RE-INDUCTION (CYCLE=28 DAYS), CYCLE 1
     Route: 042
     Dates: start: 20140914, end: 20140917

REACTIONS (2)
  - Platelet count decreased [Unknown]
  - Sepsis [Fatal]

NARRATIVE: CASE EVENT DATE: 20140925
